FAERS Safety Report 7924598-1 (Version None)
Quarter: 2011Q4

REPORT INFORMATION
  Report Type: 
  Country: None (occurrence: None)
  Receive Date: 20111117
  Receipt Date: 20110324
  Transmission Date: 20120403
  Serious: No
  Sender: FDA-Public Use
  Company Number: US-AMGEN-USASP2011016031

PATIENT
  Sex: Female

DRUGS (2)
  1. ENBREL [Suspect]
     Dosage: 50 MG, QWK
     Dates: start: 20040901, end: 20110301
  2. STELARA [Concomitant]
     Indication: PSORIASIS
     Dosage: UNK
     Dates: start: 20110301

REACTIONS (1)
  - DRUG INEFFECTIVE [None]
